FAERS Safety Report 7591550-8 (Version None)
Quarter: 2011Q2

REPORT INFORMATION
  Report Type: 
  Country: None (occurrence: None)
  Receive Date: 20110627
  Receipt Date: 20110614
  Transmission Date: 20111010
  Serious: Yes (Hospitalization, Other)
  Sender: FDA-Public Use
  Company Number: 2011MA007850

PATIENT
  Age: 36 Year
  Sex: Male

DRUGS (2)
  1. DIAZEPAM [Suspect]
  2. CLOZARIL [Suspect]
     Dosage: PO
     Route: 048
     Dates: start: 20030317

REACTIONS (3)
  - RESPIRATORY FAILURE [None]
  - ASTHMA [None]
  - TREATMENT NONCOMPLIANCE [None]
